FAERS Safety Report 24262117 (Version 1)
Quarter: 2024Q3

REPORT INFORMATION
  Report Type: Spontaneous
  Country: US (occurrence: US)
  Receive Date: 20240829
  Receipt Date: 20240829
  Transmission Date: 20241017
  Serious: No
  Sender: BOSTON SCIENTIFIC
  Company Number: US-BSC-2023000099

PATIENT

DRUGS (1)
  1. VARITHENA [Suspect]
     Active Substance: POLIDOCANOL
     Indication: Varicose vein

REACTIONS (2)
  - Pain [Unknown]
  - Skin discolouration [Unknown]
